FAERS Safety Report 4991992-0 (Version None)
Quarter: 2006Q2

REPORT INFORMATION
  Report Type: 
  Country: None (occurrence: None)
  Receive Date: 20060504
  Receipt Date: 20060201
  Transmission Date: 20061013
  Serious: Yes (Hospitalization, Other)
  Sender: FDA-Public Use
  Company Number: US-MERCK-0602USA00234

PATIENT
  Age: 51 Year
  Sex: Male
  Weight: 159 kg

DRUGS (12)
  1. LASIX [Concomitant]
     Route: 065
  2. KLOR-CON [Concomitant]
     Route: 065
  3. FLONASE [Concomitant]
     Route: 065
  4. HUMIBID [Concomitant]
     Route: 065
  5. LIDODERM [Concomitant]
     Route: 065
  6. NEXIUM [Concomitant]
     Route: 065
  7. VIOXX [Suspect]
     Indication: INTERVERTEBRAL DISC DEGENERATION
     Route: 048
     Dates: start: 20021011, end: 20040927
  8. VIOXX [Suspect]
     Route: 048
     Dates: start: 20021011, end: 20040927
  9. VIOXX [Suspect]
     Indication: INTERVERTEBRAL DISC PROTRUSION
     Route: 048
     Dates: start: 20021011, end: 20040927
  10. VIOXX [Suspect]
     Route: 048
     Dates: start: 20021011, end: 20040927
  11. HYZAAR [Concomitant]
     Route: 065
  12. LOTREL [Concomitant]
     Route: 065

REACTIONS (3)
  - BLOOD CHOLESTEROL INCREASED [None]
  - CARDIAC DISORDER [None]
  - MYOCARDIAL INFARCTION [None]
